FAERS Safety Report 8971541 (Version 1)
Quarter: 2012Q4

REPORT INFORMATION
  Report Type: 
  Country: GB (occurrence: GB)
  Receive Date: 20121217
  Receipt Date: 20121217
  Transmission Date: 20130627
  Serious: Yes (Hospitalization)
  Sender: FDA-Public Use
  Company Number: GB-TEVA-375757ISR

PATIENT
  Age: 73 Year
  Sex: Male
  Weight: 88.6 kg

DRUGS (2)
  1. OXALIPLATIN [Suspect]
     Indication: CHEMOTHERAPY
     Route: 042
     Dates: start: 20121128, end: 20121128
  2. BETA BLOCKERS [Concomitant]

REACTIONS (6)
  - Presyncope [Recovered/Resolved]
  - Unresponsive to stimuli [Recovered/Resolved]
  - Blood pressure immeasurable [Recovered/Resolved]
  - Pallor [Recovered/Resolved]
  - Chills [Recovered/Resolved]
  - Bradycardia [Recovered/Resolved]
